FAERS Safety Report 12562415 (Version 1)
Quarter: 2016Q3

REPORT INFORMATION
  Report Type: Spontaneous
  Country: KR (occurrence: KR)
  Receive Date: 20160715
  Receipt Date: 20160715
  Transmission Date: 20161109
  Serious: Yes (Other)
  Sender: FDA-Public Use
  Company Number: KR-PFIZER INC-2016338106

PATIENT
  Age: 68 Year
  Sex: Male

DRUGS (1)
  1. XALATAN [Suspect]
     Active Substance: LATANOPROST
     Indication: GLAUCOMA
     Dosage: UNK, 1X/DAY (AT 9:00 PM)
     Route: 047
     Dates: start: 201606, end: 201607

REACTIONS (7)
  - Sensation of foreign body [Recovering/Resolving]
  - Dry eye [Recovering/Resolving]
  - Dizziness [Recovering/Resolving]
  - Eye pain [Recovering/Resolving]
  - Eye discharge [Recovering/Resolving]
  - Vision blurred [Recovering/Resolving]
  - Activities of daily living impaired [Unknown]

NARRATIVE: CASE EVENT DATE: 201606
